FAERS Safety Report 24389473 (Version 1)
Quarter: 2024Q4

REPORT INFORMATION
  Report Type: Spontaneous
  Country: US (occurrence: US)
  Receive Date: 20241003
  Receipt Date: 20241003
  Transmission Date: 20250115
  Serious: Yes (Other)
  Sender: STRIDES
  Company Number: US-STRIDES ARCOLAB LIMITED-2024SP008430

PATIENT
  Age: 22 Year
  Sex: Female

DRUGS (4)
  1. PREDNISOLONE [Suspect]
     Active Substance: PREDNISOLONE
     Indication: Pleuroparenchymal fibroelastosis
     Dosage: UNK
     Route: 065
     Dates: start: 2014
  2. FLUTICASONE [Suspect]
     Active Substance: FLUTICASONE
     Indication: Pleuroparenchymal fibroelastosis
     Dosage: UNK
     Route: 065
     Dates: start: 2014
  3. TIOTROPIUM [Suspect]
     Active Substance: TIOTROPIUM
     Indication: Pleuroparenchymal fibroelastosis
     Dosage: UNK
     Route: 065
     Dates: start: 2014
  4. ALBUTEROL [Suspect]
     Active Substance: ALBUTEROL
     Indication: Pleuroparenchymal fibroelastosis
     Dosage: UNK
     Route: 065
     Dates: start: 2014

REACTIONS (1)
  - Therapy non-responder [Unknown]

NARRATIVE: CASE EVENT DATE: 20140101
